FAERS Safety Report 6537426-6 (Version None)
Quarter: 2010Q1

REPORT INFORMATION
  Report Type: 
  Country: None (occurrence: None)
  Receive Date: 20100114
  Receipt Date: 20100105
  Transmission Date: 20100710
  Serious: Yes (Other)
  Sender: FDA-Public Use
  Company Number: JP-SANOFI-AVENTIS-2009SA009674

PATIENT
  Age: 54 Year
  Sex: Female

DRUGS (22)
  1. MYSLEE [Suspect]
     Indication: INSOMNIA
     Route: 048
  2. ANEXATE [Suspect]
     Dosage: ^INJECTED OVER 10 SECONDS.^
     Route: 042
     Dates: start: 20091201, end: 20091201
  3. ANEXATE [Suspect]
     Route: 042
     Dates: start: 20090611, end: 20090611
  4. MIDAZOLAM HCL [Suspect]
     Route: 042
     Dates: start: 20091201, end: 20091201
  5. MIDAZOLAM HCL [Suspect]
     Route: 042
     Dates: start: 20090611, end: 20090611
  6. ABILIT [Concomitant]
     Indication: DEPRESSION
     Route: 048
  7. SOLANAX [Concomitant]
     Indication: DEPRESSION
     Route: 048
  8. DEPAS [Concomitant]
     Indication: DEPRESSION
     Route: 048
  9. ROHIPNOL [Concomitant]
     Indication: INSOMNIA
     Route: 048
  10. TETRAMIDE [Concomitant]
     Indication: DEPRESSION
     Route: 048
  11. XYLOCAINE [Concomitant]
     Route: 061
     Dates: start: 20090224, end: 20090224
  12. XYLOCAINE [Concomitant]
     Route: 061
     Dates: start: 20090611, end: 20090611
  13. XYLOCAINE [Concomitant]
     Route: 061
     Dates: start: 20091201, end: 20091201
  14. BUSCOPAN [Concomitant]
     Dosage: ^1 AMPULE^.
     Route: 065
     Dates: start: 20090224, end: 20090224
  15. BUSCOPAN [Concomitant]
     Dosage: ^1 AMPULE^.
     Route: 030
     Dates: start: 20090611, end: 20090611
  16. BUSCOPAN [Concomitant]
     Dosage: ^1 AMPULE^.
     Route: 030
     Dates: start: 20091201, end: 20091201
  17. GASCON [Concomitant]
     Route: 048
     Dates: start: 20090224, end: 20090224
  18. GASCON [Concomitant]
     Route: 048
     Dates: start: 20090611, end: 20090611
  19. GASCON [Concomitant]
     Route: 048
     Dates: start: 20091201, end: 20091201
  20. PRONASE [Concomitant]
     Route: 065
     Dates: start: 20090224, end: 20090224
  21. PRONASE [Concomitant]
     Route: 065
     Dates: start: 20090611, end: 20090611
  22. PRONASE [Concomitant]
     Route: 065
     Dates: start: 20091201, end: 20091201

REACTIONS (3)
  - EPILEPSY [None]
  - MUSCULOSKELETAL STIFFNESS [None]
  - UNRESPONSIVE TO STIMULI [None]
